FAERS Safety Report 6758843-5 (Version None)
Quarter: 2010Q2

REPORT INFORMATION
  Report Type: 
  Country: None (occurrence: None)
  Receive Date: 20100607
  Receipt Date: 20100603
  Transmission Date: 20101027
  Serious: Yes (Hospitalization)
  Sender: FDA-Public Use
  Company Number: JP-EISAI INC.-E2090-01199-SPO-JP

PATIENT
  Age: 80 Year
  Sex: Male

DRUGS (1)
  1. EXCEGRAN [Suspect]
     Indication: DRUG USE FOR UNKNOWN INDICATION
     Route: 048
     Dates: end: 20100101

REACTIONS (1)
  - RHABDOMYOLYSIS [None]
